FAERS Safety Report 25920493 (Version 2)
Quarter: 2025Q4

REPORT INFORMATION
  Report Type: Spontaneous
  Country: BR (occurrence: BR)
  Receive Date: 20251014
  Receipt Date: 20251017
  Transmission Date: 20260119
  Serious: Yes (Hospitalization, Other)
  Sender: SANOFI AVENTIS
  Company Number: BR-SA-2025SA301763

PATIENT
  Age: 71 Year
  Sex: Female

DRUGS (1)
  1. SARCLISA [Suspect]
     Active Substance: ISATUXIMAB-IRFC
     Indication: Product used for unknown indication
     Dosage: UNK

REACTIONS (3)
  - Nephritis [Unknown]
  - Acute kidney injury [Unknown]
  - Cytokine storm [Unknown]
